FAERS Safety Report 5071258-3 (Version None)
Quarter: 2006Q3

REPORT INFORMATION
  Report Type: 
  Country: None (occurrence: None)
  Receive Date: 20060803
  Receipt Date: 20060803
  Transmission Date: 20061208
  Serious: Yes (Other)
  Sender: FDA-Public Use
  Company Number: None

PATIENT
  Age: 73 Year
  Sex: Male

DRUGS (1)
  1. ZITHROMAX [Suspect]
     Dates: start: 20050909, end: 20050913

REACTIONS (5)
  - CHROMATURIA [None]
  - HEPATIC TRAUMA [None]
  - ILL-DEFINED DISORDER [None]
  - JAUNDICE [None]
  - LIVER DISORDER [None]
